FAERS Safety Report 25557100 (Version 1)
Quarter: 2025Q3

REPORT INFORMATION
  Report Type: Spontaneous
  Country: US (occurrence: US)
  Receive Date: 20250715
  Receipt Date: 20250715
  Transmission Date: 20251020
  Serious: No
  Sender: NOVO NORDISK
  Company Number: US-NOVOPROD-1276370

PATIENT
  Sex: Female
  Weight: 200 kg

DRUGS (1)
  1. OZEMPIC [Suspect]
     Active Substance: SEMAGLUTIDE
     Indication: Type 2 diabetes mellitus
     Dosage: 0.25 MG, QW
     Route: 058

REACTIONS (3)
  - Hunger [Not Recovered/Not Resolved]
  - Dyschezia [Not Recovered/Not Resolved]
  - Blood glucose increased [Unknown]
